FAERS Safety Report 8059095-9 (Version None)
Quarter: 2012Q1

REPORT INFORMATION
  Report Type: 
  Country: None (occurrence: None)
  Receive Date: 20120120
  Receipt Date: 20120110
  Transmission Date: 20120608
  Serious: Yes (Hospitalization)
  Sender: FDA-Public Use
  Company Number: US-JNJFOC-20110411271

PATIENT
  Age: 27 Year
  Sex: Male
  Weight: 84.6 kg

DRUGS (4)
  1. SOMA [Suspect]
     Indication: DRUG WITHDRAWAL SYNDROME
  2. AMBIEN [Suspect]
     Indication: SLEEP DISORDER THERAPY
  3. HYDROCODONE BITARTRATE [Suspect]
     Indication: DRUG WITHDRAWAL SYNDROME
  4. TYLENOL PM [Suspect]
     Indication: SLEEP DISORDER THERAPY
     Route: 065

REACTIONS (4)
  - AGITATION [None]
  - ACUTE HEPATIC FAILURE [None]
  - RENAL FAILURE [None]
  - METABOLIC ACIDOSIS [None]
